FAERS Safety Report 7927489-5 (Version None)
Quarter: 2011Q4

REPORT INFORMATION
  Report Type: 
  Country: None (occurrence: None)
  Receive Date: 20111116
  Receipt Date: 20111102
  Transmission Date: 20120403
  Serious: Yes (Other)
  Sender: FDA-Public Use
  Company Number: 20110636

PATIENT
  Age: 69 Year
  Sex: Male
  Weight: 81.6475 kg

DRUGS (3)
  1. EPINEPHRINE [Suspect]
     Indication: CATARACT OPERATION
     Dosage: 0.2 ML IN BSS
     Dates: start: 20110725, end: 20110725
  2. CEFUROXIME [Suspect]
     Indication: PROPHYLAXIS
     Dosage: OPTHALMIC
     Route: 047
     Dates: start: 20110725, end: 20110725
  3. BSS [Suspect]
     Indication: MEDICATION DILUTION
     Dosage: 1 BOTTLE INTRAOCULAR
     Route: 031
     Dates: start: 20110725, end: 20110725

REACTIONS (5)
  - STAPHYLOCOCCAL INFECTION [None]
  - EYE INFECTION [None]
  - VISUAL IMPAIRMENT [None]
  - RETINAL HAEMORRHAGE [None]
  - OFF LABEL USE [None]
